FAERS Safety Report 8322576-4 (Version None)
Quarter: 2012Q2

REPORT INFORMATION
  Report Type: 
  Country: None (occurrence: None)
  Receive Date: 20120430
  Receipt Date: 20120420
  Transmission Date: 20120825
  Serious: Yes (Hospitalization)
  Sender: FDA-Public Use
  Company Number: GB-JNJFOC-20111108901

PATIENT
  Sex: Female

DRUGS (3)
  1. REMICADE [Suspect]
     Indication: FOETAL EXPOSURE DURING PREGNANCY
     Route: 064
  2. AZATHIOPRINE [Concomitant]
     Route: 065
  3. PENTASA [Concomitant]
     Route: 065

REACTIONS (3)
  - LOWER RESPIRATORY TRACT INFECTION [None]
  - CARDIAC ARREST [None]
  - PREMATURE BABY [None]
